FAERS Safety Report 6989840-2 (Version None)
Quarter: 2010Q3

REPORT INFORMATION
  Report Type: 
  Country: None (occurrence: None)
  Receive Date: 20100916
  Receipt Date: 20100225
  Transmission Date: 20110219
  Serious: Yes (Other)
  Sender: FDA-Public Use
  Company Number: DE-PFIZER INC-2010024306

PATIENT
  Sex: Female

DRUGS (3)
  1. LYRICA [Suspect]
     Indication: MENTAL DISORDER
     Dosage: 25 MG, 3X/DAY
     Route: 048
     Dates: start: 20100118, end: 20100101
  2. LYRICA [Suspect]
     Dosage: 50 MG, 2X/DAY
     Route: 048
     Dates: start: 20100101
  3. QUENSYL [Concomitant]
     Dosage: UNK
     Route: 048
     Dates: start: 20091201

REACTIONS (1)
  - CUTANEOUS LUPUS ERYTHEMATOSUS [None]
